FAERS Safety Report 9995297 (Version 1)
Quarter: 2014Q1

REPORT INFORMATION
  Report Type: Spontaneous
  Country: FR (occurrence: FR)
  Receive Date: 20140311
  Receipt Date: 20140311
  Transmission Date: 20141002
  Serious: Yes (Hospitalization)
  Sender: FDA-Public Use
  Company Number: FR-ASTELLAS-2014EU002079

PATIENT
  Sex: Male
  Weight: 70 kg

DRUGS (2)
  1. XTANDI [Suspect]
     Indication: PROSTATE CANCER METASTATIC
     Dosage: 160 MG, UID/QD
     Route: 048
     Dates: start: 20140110
  2. NEORECORMON [Concomitant]
     Indication: ANAEMIA
     Dosage: 30000 U, WEEKLY
     Route: 058
     Dates: start: 201401

REACTIONS (1)
  - Anaemia [Recovered/Resolved]
